FAERS Safety Report 7711568-1 (Version None)
Quarter: 2011Q3

REPORT INFORMATION
  Report Type: 
  Country: None (occurrence: None)
  Receive Date: 20110826
  Receipt Date: 20110817
  Transmission Date: 20111222
  Serious: Yes (Other)
  Sender: FDA-Public Use
  Company Number: US-BAYER-2011-023372

PATIENT
  Age: 19 Year
  Sex: Female

DRUGS (4)
  1. DROSPIRENONE AND ETHINYL ESTRADIOL [Suspect]
     Indication: CONTRACEPTION
     Dosage: UNK
     Dates: start: 20090922, end: 20091122
  2. ALLEGRA [Concomitant]
     Route: 048
  3. TAMIFLU [Concomitant]
     Dosage: UNK
     Route: 048
     Dates: start: 20091012
  4. ALBUTEROL SULFATE AUTOHALER [Concomitant]

REACTIONS (12)
  - INJURY [None]
  - DIARRHOEA [None]
  - SCAR [None]
  - ANXIETY [None]
  - CHOLECYSTITIS ACUTE [None]
  - FLATULENCE [None]
  - ABDOMINAL DISTENSION [None]
  - DEPRESSION [None]
  - CONSTIPATION [None]
  - CHOLELITHIASIS [None]
  - DYSPEPSIA [None]
  - GALLBLADDER DISORDER [None]
